FAERS Safety Report 13735282 (Version 1)
Quarter: 2017Q3

REPORT INFORMATION
  Report Type: Spontaneous
  Country: US (occurrence: US)
  Receive Date: 20170707
  Receipt Date: 20170707
  Transmission Date: 20171127
  Serious: Yes (Other)
  Sender: FDA-Public Use
  Company Number: None

PATIENT
  Age: 30 Year
  Sex: Female
  Weight: 63 kg

DRUGS (2)
  1. ALKA-SELTZER [Concomitant]
     Active Substance: ANHYDROUS CITRIC ACID\ASPIRIN\SODIUM BICARBONATE
  2. CIPROFLAXIN [Suspect]
     Active Substance: CIPROFLOXACIN
     Indication: KIDNEY INFECTION
     Dosage: ?          OTHER STRENGTH:MG;QUANTITY:14 TABLET(S);?
     Route: 048
     Dates: start: 20170623, end: 20170624

REACTIONS (7)
  - Dizziness [None]
  - Tendon pain [None]
  - Decreased appetite [None]
  - Musculoskeletal stiffness [None]
  - Joint stiffness [None]
  - Contusion [None]
  - Hypoaesthesia [None]

NARRATIVE: CASE EVENT DATE: 20170623
